FAERS Safety Report 16553941 (Version 2)
Quarter: 2019Q4

REPORT INFORMATION
  Report Type: Spontaneous
  Country: US (occurrence: US)
  Receive Date: 20190710
  Receipt Date: 20191125
  Transmission Date: 20200122
  Serious: No
  Sender: FDA-Public Use
  Company Number: US-ALLERGAN-1916706US

PATIENT
  Sex: Male

DRUGS (4)
  1. NAMENDA XR [Suspect]
     Active Substance: MEMANTINE HYDROCHLORIDE
     Indication: AUTISM SPECTRUM DISORDER
     Dosage: 14 MG (7 MG TABLETS X2)
     Route: 048
     Dates: start: 201904, end: 201904
  2. ANXIETY MEDICATIONS [Concomitant]
     Indication: ANXIETY
     Dosage: UNK
     Route: 048
  3. MOOD STABILIZERS [Concomitant]
     Active Substance: UNSPECIFIED INGREDIENT
     Dosage: UNK
     Route: 048
  4. NAMENDA XR [Suspect]
     Active Substance: MEMANTINE HYDROCHLORIDE
     Dosage: 7 MG
     Route: 048
     Dates: start: 201901, end: 201904

REACTIONS (2)
  - Off label use [Unknown]
  - Aggression [Recovered/Resolved]
